FAERS Safety Report 17076071 (Version 1)
Quarter: 2019Q4

REPORT INFORMATION
  Report Type: Report from Study
  Country: None (occurrence: US)
  Receive Date: 20191126
  Receipt Date: 20191126
  Transmission Date: 20200122
  Serious: Yes (Hospitalization, Other)
  Sender: FDA-Public Use
  Company Number: US-ABBVIE-19K-163-3013479-00

PATIENT
  Sex: Female

DRUGS (1)
  1. CREON [Suspect]
     Active Substance: PANCRELIPASE AMYLASE\PANCRELIPASE LIPASE\PANCRELIPASE PROTEASE
     Indication: PRODUCT USED FOR UNKNOWN INDICATION
     Route: 048

REACTIONS (8)
  - Diarrhoea [Unknown]
  - Maternal exposure during pregnancy [Unknown]
  - Pancreatic failure [Unknown]
  - Hysterectomy [Unknown]
  - Appendicectomy [Unknown]
  - Abdominal hernia repair [Unknown]
  - Exposure to toxic agent [Unknown]
  - Cholecystectomy [Unknown]

NARRATIVE: CASE EVENT DATE: 1980
